FAERS Safety Report 6038886-X (Version None)
Quarter: 2009Q1

REPORT INFORMATION
  Report Type: 
  Country: None (occurrence: None)
  Receive Date: 20090114
  Receipt Date: 20090114
  Transmission Date: 20090719
  Serious: Yes (Other)
  Sender: FDA-Public Use
  Company Number: None

PATIENT
  Sex: Female
  Weight: 55.3388 kg

DRUGS (4)
  1. YAZ [Suspect]
     Indication: DYSMENORRHOEA
     Dosage: 1 DAILY PO
     Route: 048
     Dates: start: 20081207, end: 20081222
  2. DETROL LA [Concomitant]
  3. MULTI-VITAMIN [Concomitant]
  4. CALCIUM/VITAMIN D [Concomitant]

REACTIONS (1)
  - BLOOD POTASSIUM INCREASED [None]
